FAERS Safety Report 21921633 (Version 1)
Quarter: 2023Q1

REPORT INFORMATION
  Report Type: Spontaneous
  Country: US (occurrence: US)
  Receive Date: 20230127
  Receipt Date: 20230127
  Transmission Date: 20230417
  Serious: No
  Sender: FDA-Public Use
  Company Number: US-GLAXOSMITHKLINE-USCH2023003753

PATIENT
  Age: 85 Year

DRUGS (1)
  1. ADVIL PM [Suspect]
     Active Substance: DIPHENHYDRAMINE CITRATE\IBUPROFEN
     Indication: Product used for unknown indication
     Dosage: UNK
     Dates: start: 20230123, end: 20230123

REACTIONS (1)
  - Paraesthesia [Recovered/Resolved]

NARRATIVE: CASE EVENT DATE: 20230123
